FAERS Safety Report 11128570 (Version 1)
Quarter: 2015Q2

REPORT INFORMATION
  Report Type: Spontaneous
  Country: TN (occurrence: None)
  Receive Date: 20150519
  Receipt Date: 20150519
  Transmission Date: 20150821
  Serious: Yes (Other)
  Sender: FDA-Public Use
  Company Number: 8025630

PATIENT
  Age: 43 Year
  Sex: Female

DRUGS (7)
  1. LEVOTHYROX (LEVOTHYROXINE SODIUM) (LEVOTHYROXINE SODIUM) [Suspect]
     Active Substance: LEVOTHYROXINE SODIUM
     Indication: PRODUCT USED FOR UNKNOWN INDICATION
  2. CLAMOXYL (AMOXICILLIN) [Suspect]
     Active Substance: AMOXICILLIN
     Indication: PRODUCT USED FOR UNKNOWN INDICATION
  3. IBUPHIL (IBUPROFEN) (IBUPROFEN) [Concomitant]
  4. UNIDEX (DEXAMETHASONE SODIUM PHOSPHATE) (DEXAMETHASONE SODIUM PHOSPHATE) [Concomitant]
  5. INFENAMYL (MEFENNAMIC ACID) (MEFENAMIC ACID) [Concomitant]
  6. MEDICAINE /00355202/ (OXYBUPROCAINE HYROCHLORIDE) [Suspect]
     Active Substance: BENOXINATE HYDROCHLORIDE
     Indication: PRODUCT USED FOR UNKNOWN INDICATION
  7. AUGMENT (AUGMENTIN) (AMOXICILLIN SODIUM, CLAVULANATE POTASSIUM) [Concomitant]

REACTIONS (2)
  - Periorbital oedema [None]
  - Eye oedema [None]
